FAERS Safety Report 5564127-3 (Version None)
Quarter: 2007Q4

REPORT INFORMATION
  Report Type: 
  Country: None (occurrence: None)
  Receive Date: 20071217
  Receipt Date: 20071205
  Transmission Date: 20080405
  Serious: Yes (Other)
  Sender: FDA-Public Use
  Company Number: US-PFIZER INC-2007102507

PATIENT
  Sex: Female
  Weight: 81.818 kg

DRUGS (12)
  1. LYRICA [Suspect]
     Indication: FIBROMYALGIA
  2. NEURONTIN [Suspect]
     Indication: FIBROMYALGIA
  3. VYTORIN [Concomitant]
  4. ALL OTHER THERAPEUTIC PRODUCTS [Concomitant]
  5. CARISOPRODOL [Concomitant]
  6. SERTRALINE [Concomitant]
  7. PROTONIX [Concomitant]
  8. REQUIP [Concomitant]
  9. SPIRIVA [Concomitant]
  10. ADVAIR DISKUS 100/50 [Concomitant]
  11. FOSAMAX [Concomitant]
  12. VITAMINS [Concomitant]

REACTIONS (5)
  - DRUG INEFFECTIVE [None]
  - FUNGAL INFECTION [None]
  - PRURITUS [None]
  - RASH [None]
  - SWELLING FACE [None]
